FAERS Safety Report 22005345 (Version 2)
Quarter: 2023Q1

REPORT INFORMATION
  Report Type: Spontaneous
  Country: CA (occurrence: CA)
  Receive Date: 20230217
  Receipt Date: 20230320
  Transmission Date: 20230417
  Serious: Yes (Other)
  Sender: FDA-Public Use
  Company Number: CA-PFIZER INC-202200975887

PATIENT
  Age: 15 Year
  Sex: Male
  Weight: 77 kg

DRUGS (2)
  1. ABRILADA [Suspect]
     Active Substance: ADALIMUMAB-AFZB
     Indication: Crohn^s disease
     Dosage: 1DF, PREFILLED PEN; 160 MG WEEK 0, 80 MG WEEK 2 THEN MAINTENANCE 40 MG EVERY 2 WEEKS
     Route: 058
     Dates: start: 20220714
  2. ABRILADA [Suspect]
     Active Substance: ADALIMUMAB-AFZB
     Dosage: 1 DF, REINDUCTION 160MG WEEK 0, 80MG WEEK 2, THEN 40MG Q WEEK.
     Route: 058
     Dates: start: 20230209

REACTIONS (13)
  - Angina pectoris [Not Recovered/Not Resolved]
  - Therapeutic response shortened [Unknown]
  - Off label use [Unknown]
  - Off label use [Unknown]
  - Headache [Not Recovered/Not Resolved]
  - Stress [Recovering/Resolving]
  - Feeling abnormal [Recovering/Resolving]
  - Asthenia [Recovering/Resolving]
  - Abdominal pain [Recovered/Resolved]
  - Abdominal distension [Not Recovered/Not Resolved]
  - Arthralgia [Unknown]
  - Fatigue [Not Recovered/Not Resolved]
  - COVID-19 [Not Recovered/Not Resolved]

NARRATIVE: CASE EVENT DATE: 20220101
